FAERS Safety Report 14626864 (Version 1)
Quarter: 2018Q1

REPORT INFORMATION
  Report Type: Spontaneous
  Country: US (occurrence: US)
  Receive Date: 20180311
  Receipt Date: 20180311
  Transmission Date: 20180509
  Serious: No
  Sender: FDA-Public Use
  Company Number: None

PATIENT
  Age: 36 Year
  Sex: Male

DRUGS (1)
  1. TRAZODONE [Suspect]
     Active Substance: TRAZODONE HYDROCHLORIDE
     Indication: INSOMNIA
     Dosage: 100 MG PM PO
     Route: 048
     Dates: start: 20140501, end: 20171110

REACTIONS (2)
  - Erection increased [None]
  - Priapism [None]

NARRATIVE: CASE EVENT DATE: 20171110
